FAERS Safety Report 10143988 (Version 2)
Quarter: 2014Q4

REPORT INFORMATION
  Report Type: Spontaneous
  Country: IT (occurrence: IT)
  Receive Date: 20140430
  Receipt Date: 20141118
  Transmission Date: 20150528
  Serious: Yes (Death)
  Sender: FDA-Public Use
  Company Number: IT-BRISTOL-MYERS SQUIBB COMPANY-20681094

PATIENT
  Age: 50 Year
  Sex: Male

DRUGS (3)
  1. FLUOROURACIL. [Suspect]
     Active Substance: FLUOROURACIL
     Route: 042
     Dates: start: 20140402, end: 20140402
  2. IRINOTECAN [Suspect]
     Active Substance: IRINOTECAN
     Route: 042
     Dates: start: 20140402, end: 20140402
  3. ERBITUX [Suspect]
     Active Substance: CETUXIMAB
     Indication: COLON CANCER METASTATIC
     Dosage: 5MG/ML
     Route: 042
     Dates: start: 20140402, end: 20140402

REACTIONS (1)
  - Hypovolaemic shock [Fatal]

NARRATIVE: CASE EVENT DATE: 20140416
